FAERS Safety Report 19082345 (Version 1)
Quarter: 2021Q2

REPORT INFORMATION
  Report Type: Spontaneous
  Country: US (occurrence: US)
  Receive Date: 20210401
  Receipt Date: 20210401
  Transmission Date: 20210717
  Serious: Yes (Hospitalization, Other)
  Sender: FDA-Public Use
  Company Number: US-OXFORD PHARMACEUTICALS, LLC-2108751

PATIENT
  Age: 24 Month
  Sex: Female

DRUGS (6)
  1. LORAZEPAM. [Concomitant]
     Active Substance: LORAZEPAM
  2. PENTOBARBITAL SODIUM. [Concomitant]
     Active Substance: PENTOBARBITAL SODIUM
  3. CLOBAZAM. [Concomitant]
     Active Substance: CLOBAZAM
  4. VALPROIC ACID. [Concomitant]
     Active Substance: VALPROIC ACID
  5. LEVETIRACETAM. [Suspect]
     Active Substance: LEVETIRACETAM
     Indication: EPILEPSY
  6. MIDAZOLAM. [Concomitant]
     Active Substance: MIDAZOLAM

REACTIONS (4)
  - Drug resistance [Recovered/Resolved]
  - Seizure [Recovered/Resolved]
  - Paradoxical drug reaction [Recovered/Resolved]
  - Status epilepticus [Recovered/Resolved]
